FAERS Safety Report 12388039 (Version 2)
Quarter: 2016Q2

REPORT INFORMATION
  Report Type: Report from Study
  Country: US (occurrence: US)
  Receive Date: 20160520
  Receipt Date: 20160525
  Transmission Date: 20160815
  Serious: Yes (Other)
  Sender: FDA-Public Use
  Company Number: US-GILEAD-2016-0208960

PATIENT
  Age: 61 Year
  Sex: Female
  Weight: 62.13 kg

DRUGS (8)
  1. LASIX [Concomitant]
     Active Substance: FUROSEMIDE
  2. SPIRONOLACTONE. [Concomitant]
     Active Substance: SPIRONOLACTONE
  3. ADCIRCA [Concomitant]
     Active Substance: TADALAFIL
  4. LYRICA [Concomitant]
     Active Substance: PREGABALIN
  5. LISINOPRIL. [Concomitant]
     Active Substance: LISINOPRIL
  6. LEVOTHYROXINE. [Concomitant]
     Active Substance: LEVOTHYROXINE
  7. AMBRISENTAN [Suspect]
     Active Substance: AMBRISENTAN
     Indication: PRODUCT USED FOR UNKNOWN INDICATION
     Dosage: 5 MG, QD
     Route: 065
  8. ASPIRIN                            /00002701/ [Concomitant]
     Active Substance: ASPIRIN

REACTIONS (3)
  - Back pain [Unknown]
  - Diverticulitis [Unknown]
  - Peripheral swelling [Not Recovered/Not Resolved]
